FAERS Safety Report 15059311 (Version 3)
Quarter: 2018Q3

REPORT INFORMATION
  Report Type: Spontaneous
  Country: US (occurrence: US)
  Receive Date: 20180625
  Receipt Date: 20180720
  Transmission Date: 20181010
  Serious: Yes (Disabling, Other)
  Sender: FDA-Public Use
  Company Number: US-009507513-1806USA003981

PATIENT
  Age: 33 Year
  Sex: Female
  Weight: 133.33 kg

DRUGS (3)
  1. NEXPLANON [Suspect]
     Active Substance: ETONOGESTREL
     Indication: CONTRACEPTION
     Dosage: IMPLANT IN THE LEFT ARM EVERY 3 YEARS
     Route: 059
     Dates: end: 20150714
  2. DEXILANT [Concomitant]
     Active Substance: DEXLANSOPRAZOLE
     Indication: GASTROOESOPHAGEAL REFLUX DISEASE
     Dosage: 30 MG, QD
     Route: 048
  3. NEXPLANON [Suspect]
     Active Substance: ETONOGESTREL
     Dosage: IMPLANT IN THE LEFT ARM EVERY 3 YEARS
     Route: 059
     Dates: start: 20150714

REACTIONS (12)
  - Postoperative wound infection [Recovered/Resolved]
  - Device deployment issue [Unknown]
  - Device difficult to use [Not Recovered/Not Resolved]
  - Bacterial test negative [Unknown]
  - Complication of device removal [Not Recovered/Not Resolved]
  - Dermatitis allergic [Unknown]
  - Post procedural drainage [Unknown]
  - Paraesthesia [Unknown]
  - Complication of device removal [Recovered/Resolved]
  - Hypoaesthesia [Unknown]
  - Device dislocation [Not Recovered/Not Resolved]
  - Complication associated with device [Recovered/Resolved]

NARRATIVE: CASE EVENT DATE: 20150714
